FAERS Safety Report 9549258 (Version 2)
Quarter: 2013Q3

REPORT INFORMATION
  Report Type: Spontaneous
  Country: US (occurrence: US)
  Receive Date: 20130924
  Receipt Date: 20130924
  Transmission Date: 20140515
  Serious: Yes (Other)
  Sender: FDA-Public Use
  Company Number: US-MERCK-1110USA02950

PATIENT
  Age: 77 Year
  Sex: Female

DRUGS (5)
  1. JANUVIA [Suspect]
     Route: 048
     Dates: start: 20110927, end: 20110927
  2. JANUVIA [Suspect]
     Route: 048
     Dates: end: 20110925
  3. LANTUS [Suspect]
     Indication: TYPE 2 DIABETES MELLITUS
     Dosage: 20 IU, QD
     Route: 058
     Dates: start: 2011
  4. LANTUS [Suspect]
     Dosage: 10 IU, QD
     Route: 058
     Dates: start: 20110829, end: 2011
  5. GLIPIZIDE [Suspect]

REACTIONS (4)
  - Blood glucose increased [Unknown]
  - Pain in extremity [Unknown]
  - Drug interaction [Unknown]
  - Condition aggravated [Unknown]
